FAERS Safety Report 11757159 (Version 1)
Quarter: 2015Q4

REPORT INFORMATION
  Report Type: Report from Study
  Country: US (occurrence: US)
  Receive Date: 20151120
  Receipt Date: 20151120
  Transmission Date: 20160304
  Serious: Yes (Other)
  Sender: FDA-Public Use
  Company Number: US-ABBVIE-15K-163-1500717-00

PATIENT
  Age: 48 Year
  Sex: Female

DRUGS (3)
  1. LISINOPRIL. [Interacting]
     Active Substance: LISINOPRIL
     Indication: HYPERTENSION
     Route: 065
  2. HUMIRA [Suspect]
     Active Substance: ADALIMUMAB
     Indication: PSORIASIS
     Route: 058
     Dates: start: 20150522
  3. LISINOPRIL. [Interacting]
     Active Substance: LISINOPRIL
     Route: 065
     Dates: start: 20151109, end: 20151109

REACTIONS (10)
  - Food interaction [Unknown]
  - Local swelling [Recovered/Resolved]
  - Angioedema [Recovered/Resolved]
  - Swollen tongue [Recovering/Resolving]
  - Tongue disorder [Recovering/Resolving]
  - Blood pressure increased [Recovered/Resolved]
  - Swelling face [Recovered/Resolved]
  - Anaphylactic reaction [Recovered/Resolved]
  - Drug interaction [Unknown]
  - Tachycardia [Recovered/Resolved]

NARRATIVE: CASE EVENT DATE: 20151109
